FAERS Safety Report 22523890 (Version 1)
Quarter: 2023Q2

REPORT INFORMATION
  Report Type: Spontaneous
  Country: US (occurrence: US)
  Receive Date: 20230606
  Receipt Date: 20230606
  Transmission Date: 20230722
  Serious: Yes (Hospitalization, Other)
  Sender: FDA-Public Use
  Company Number: None

PATIENT
  Age: 75 Year
  Sex: Male
  Weight: 57.7 kg

DRUGS (12)
  1. MYCOPHENOLATE MOFETIL [Suspect]
     Active Substance: MYCOPHENOLATE MOFETIL
     Indication: Immunosuppressant drug therapy
     Dosage: UNK
     Route: 065
  2. TACROLIMUS [Suspect]
     Active Substance: TACROLIMUS
     Indication: Immunosuppressant drug therapy
     Dosage: UNK
     Route: 065
  3. ACYCLOVIR [Suspect]
     Active Substance: ACYCLOVIR
     Indication: Herpes zoster reactivation
     Dosage: 10 MILLIGRAM/KILOGRAM, TID (EVERY 8 HOURS) ON DAY 3 OF ADMISSION
     Route: 042
  4. ACYCLOVIR [Suspect]
     Active Substance: ACYCLOVIR
     Indication: Mediastinitis
     Dosage: 10 MILLIGRAM/KILOGRAM, QD
     Route: 042
  5. ACYCLOVIR [Suspect]
     Active Substance: ACYCLOVIR
     Dosage: 10 MILLIGRAM/KILOGRAM, TID (EVERY 8 HOURS) IF CRCL IS }50
     Route: 042
  6. ACYCLOVIR [Suspect]
     Active Substance: ACYCLOVIR
     Dosage: 10 MILLIGRAM/KILOGRAM, BID (EVERY 12 H) IF CRCL IS 25-50
     Route: 042
  7. ACYCLOVIR [Suspect]
     Active Substance: ACYCLOVIR
     Dosage: 5 MILLIGRAM/KILOGRAM, QD (EVERY 24 H) IF CRCL IS LESS THAN 10 AND ALSO 5MG/KG POST HEMODIALYSIS
     Route: 042
  8. ACYCLOVIR [Suspect]
     Active Substance: ACYCLOVIR
     Dosage: 10 MILLIGRAM/KILOGRAM/DAY (10-25)
     Route: 042
  9. PREDNISONE [Suspect]
     Active Substance: PREDNISONE
     Indication: Herpes zoster reactivation
     Dosage: UNK
     Route: 065
  10. PREDNISONE [Suspect]
     Active Substance: PREDNISONE
     Indication: Immunosuppressant drug therapy
     Dosage: UNK
     Route: 065
  11. PREDNISONE [Suspect]
     Active Substance: PREDNISONE
     Indication: Varicella zoster virus infection
  12. CEFEPIME [Concomitant]
     Active Substance: CEFEPIME HYDROCHLORIDE
     Indication: Mediastinitis
     Dosage: UNK
     Route: 065

REACTIONS (6)
  - Toxicity to various agents [Recovered/Resolved]
  - Atrophy [Recovered/Resolved]
  - Encephalopathy [Recovered/Resolved]
  - Neurotoxicity [Recovered/Resolved]
  - Herpes zoster reactivation [Recovered/Resolved]
  - Disseminated varicella zoster virus infection [Recovered/Resolved]
